FAERS Safety Report 18139124 (Version 1)
Quarter: 2020Q3

REPORT INFORMATION
  Report Type: Spontaneous
  Country: US (occurrence: US)
  Receive Date: 20200812
  Receipt Date: 20200812
  Transmission Date: 20201103
  Serious: Yes (Disabling, Other)
  Sender: FDA-Public Use
  Company Number: None

PATIENT
  Age: 11 Week
  Sex: Male
  Weight: 81.9 kg

DRUGS (2)
  1. MODAFINIL TABLET [Suspect]
     Active Substance: MODAFINIL
     Indication: CHRONIC FATIGUE SYNDROME
     Dosage: ?          QUANTITY:180 TABLET(S);?
     Route: 048
     Dates: start: 20200706, end: 20200731
  2. MODAFINIL TABLET [Suspect]
     Active Substance: MODAFINIL
     Indication: GRAFT VERSUS HOST DISEASE
     Dosage: ?          QUANTITY:180 TABLET(S);?
     Route: 048
     Dates: start: 20200706, end: 20200731

REACTIONS (6)
  - Suspected product quality issue [None]
  - Drug ineffective [None]
  - Fatigue [None]
  - Product formulation issue [None]
  - Product substitution issue [None]
  - Somnolence [None]

NARRATIVE: CASE EVENT DATE: 20200706
